FAERS Safety Report 7450670-9 (Version None)
Quarter: 2011Q2

REPORT INFORMATION
  Report Type: 
  Country: None (occurrence: None)
  Receive Date: 20110502
  Receipt Date: 20110428
  Transmission Date: 20111010
  Serious: Yes (Other)
  Sender: FDA-Public Use
  Company Number: ES-SANOFI-AVENTIS-2011SA014243

PATIENT
  Age: 93 Year
  Sex: Male

DRUGS (6)
  1. LEVOTHYROXINE SODIUM [Concomitant]
     Indication: HYPOTHYROIDISM
     Route: 048
     Dates: start: 19800101
  2. CLEXANE SYRINGES [Suspect]
     Indication: PROPHYLAXIS
     Route: 058
     Dates: start: 20101208, end: 20101212
  3. ENALAPRIL [Concomitant]
     Indication: HYPERTENSION
     Route: 048
     Dates: start: 19900101
  4. ZYVOX [Suspect]
     Indication: HIP SURGERY
     Route: 042
     Dates: start: 20101210, end: 20101213
  5. CEFAZOLIN [Concomitant]
     Indication: PROPHYLAXIS
     Route: 042
     Dates: start: 20101210, end: 20101210
  6. PANTOPRAZOLE [Concomitant]
     Indication: PROPHYLAXIS
     Route: 042
     Dates: start: 20101208

REACTIONS (4)
  - ANAEMIA [None]
  - HYPOTENSION [None]
  - HYPOCOAGULABLE STATE [None]
  - POST PROCEDURAL HAEMATOMA [None]
